FAERS Safety Report 7292296-6 (Version None)
Quarter: 2011Q1

REPORT INFORMATION
  Report Type: 
  Country: None (occurrence: None)
  Receive Date: 20110202
  Receipt Date: 20110128
  Transmission Date: 20110831
  Serious: Yes (Life-Threatening)
  Sender: FDA-Public Use
  Company Number: 2010SP057835

PATIENT
  Age: 68 Year
  Sex: Female

DRUGS (15)
  1. MEQUITAZINE [Concomitant]
  2. CLARITHROMYCIN [Concomitant]
  3. ZOLPIDEM TARTRATE [Suspect]
     Indication: DEPRESSION
     Dosage: 5 MG; QD; PO
     Route: 048
  4. QUETIAPINE FUMARATE [Concomitant]
  5. CARBOCISTEINE [Concomitant]
  6. OCTOTIAMINE [Concomitant]
  7. DOGMATYL [Concomitant]
  8. LORAZEPAM [Suspect]
     Indication: DEPRESSION
     Dosage: 0.5 MG; QD; PO
     Route: 048
  9. LORAZEPAM [Suspect]
     Indication: ANXIETY
     Dosage: 0.5 MG; QD; PO
     Route: 048
  10. ETIZOLAM (ETIZOLAM) [Suspect]
     Indication: DEPRESSION
     Dosage: 1.5 MG; QD; PO
     Route: 048
  11. DIAZEPAM [Suspect]
     Indication: DEPRESSION
     Dosage: 4 MG; QD; PO
     Route: 048
     Dates: end: 20100614
  12. POVIDONE-IODINE SULPIRIDE [Concomitant]
  13. MIRTAZAPINE [Suspect]
     Indication: DEPRESSION
     Dosage: 15 MG; QD; PO, 30 MG; QD; PO
     Route: 048
     Dates: start: 20100614, end: 20101003
  14. MIRTAZAPINE [Suspect]
     Indication: DEPRESSION
     Dosage: 15 MG; QD; PO, 30 MG; QD; PO
     Route: 048
     Dates: start: 20101004, end: 20101014
  15. DIOVAN [Suspect]
     Indication: HYPERTENSION
     Dosage: 40 MG; QD; PO
     Route: 048
     Dates: end: 20101015

REACTIONS (6)
  - SUICIDAL IDEATION [None]
  - DRUG INTERACTION [None]
  - CONSTIPATION [None]
  - DECREASED APPETITE [None]
  - DYSURIA [None]
  - HEADACHE [None]
